FAERS Safety Report 5532180-9 (Version None)
Quarter: 2007Q4

REPORT INFORMATION
  Report Type: 
  Country: None (occurrence: None)
  Receive Date: 20071203
  Receipt Date: 20071126
  Transmission Date: 20080405
  Serious: Yes (Hospitalization)
  Sender: FDA-Public Use
  Company Number: FR-AVENTIS-200713750FR

PATIENT
  Age: 61 Year
  Sex: Female

DRUGS (9)
  1. LASIX [Suspect]
     Route: 048
     Dates: start: 20070806
  2. SOLUPRED                           /00016201/ [Suspect]
     Route: 048
     Dates: start: 20070814
  3. CELLCEPT [Suspect]
     Dates: start: 20070612, end: 20070101
  4. PROGRAF [Suspect]
     Route: 048
     Dates: start: 20070612
  5. AMLOR [Suspect]
     Route: 048
     Dates: start: 20070821
  6. EUPRESSYL                          /00631801/ [Suspect]
     Route: 048
     Dates: start: 20070612
  7. PREVISCAN                          /00789001/ [Suspect]
     Route: 048
     Dates: start: 20070601, end: 20070101
  8. VASTEN                             /00880402/ [Concomitant]
     Route: 048
  9. SODIUM BICARBONATE [Concomitant]

REACTIONS (4)
  - BLOOD ALKALINE PHOSPHATASE INCREASED [None]
  - CHOLESTASIS [None]
  - GAMMA-GLUTAMYLTRANSFERASE INCREASED [None]
  - HEPATITIS [None]
